FAERS Safety Report 10168067 (Version 2)
Quarter: 2014Q3

REPORT INFORMATION
  Report Type: Report from Study
  Country: US (occurrence: US)
  Receive Date: 20140512
  Receipt Date: 20140710
  Transmission Date: 20150326
  Serious: Yes (Hospitalization)
  Sender: FDA-Public Use
  Company Number: US-ACTELION-A-NJ2014-98557

PATIENT
  Age: 40 Year
  Sex: Female

DRUGS (4)
  1. SILDENAFIL [Concomitant]
     Active Substance: SILDENAFIL
  2. FLOLAN [Concomitant]
     Active Substance: EPOPROSTENOL SODIUM
  3. COUMADIN [Concomitant]
     Active Substance: WARFARIN SODIUM
  4. TRACLEER [Suspect]
     Active Substance: BOSENTAN\BOSENTAN MONOHYDRATE
     Indication: PULMONARY ARTERIAL HYPERTENSION
     Dosage: UNK
     Route: 048
     Dates: end: 201404

REACTIONS (2)
  - Lung disorder [Unknown]
  - Lung transplant [Unknown]
